FAERS Safety Report 19134332 (Version 7)
Quarter: 2023Q1

REPORT INFORMATION
  Report Type: Report from Study
  Country: CA (occurrence: CA)
  Receive Date: 20210414
  Receipt Date: 20230130
  Transmission Date: 20230417
  Serious: Yes (Other)
  Sender: FDA-Public Use
  Company Number: NVSC2021CA073390

PATIENT
  Age: 61 Year
  Sex: Female

DRUGS (5)
  1. MAYZENT [Suspect]
     Active Substance: SIPONIMOD
     Indication: Secondary progressive multiple sclerosis
     Dosage: 2 MG
     Route: 048
     Dates: start: 20201010, end: 20210323
  2. MAYZENT [Suspect]
     Active Substance: SIPONIMOD
     Dosage: 1 MG
     Route: 048
     Dates: start: 20210323
  3. MAYZENT [Suspect]
     Active Substance: SIPONIMOD
     Dosage: UNK
     Route: 048
     Dates: start: 20210409
  4. MAYZENT [Suspect]
     Active Substance: SIPONIMOD
     Dosage: 1 MG, UNKNOWN
     Route: 048
     Dates: start: 20220123
  5. MAYZENT [Suspect]
     Active Substance: SIPONIMOD
     Dosage: UNK, QOD (EVERY 2ND DAY)
     Route: 065

REACTIONS (11)
  - White blood cell count decreased [Unknown]
  - Lymphopenia [Recovered/Resolved]
  - COVID-19 [Recovered/Resolved]
  - Pyrexia [Recovered/Resolved]
  - Cough [Unknown]
  - Fatigue [Recovered/Resolved]
  - Migraine [Unknown]
  - Nausea [Unknown]
  - Gingivitis [Recovering/Resolving]
  - Feeling abnormal [Unknown]
  - Headache [Unknown]

NARRATIVE: CASE EVENT DATE: 20210323
